FAERS Safety Report 12154552 (Version 1)
Quarter: 2016Q1

REPORT INFORMATION
  Report Type: Spontaneous
  Country: FR (occurrence: FR)
  Receive Date: 20160307
  Receipt Date: 20160307
  Transmission Date: 20160526
  Serious: Yes (Congenital Anomaly)
  Sender: FDA-Public Use
  Company Number: FR-SA-2016SA040255

PATIENT
  Age: 9 Year
  Sex: Female
  Weight: 37.4 kg

DRUGS (1)
  1. CLOMID [Suspect]
     Active Substance: CLOMIPHENE CITRATE
     Route: 065

REACTIONS (1)
  - Precocious puberty [Recovered/Resolved with Sequelae]

NARRATIVE: CASE EVENT DATE: 2015
